FAERS Safety Report 20608390 (Version 8)
Quarter: 2022Q4

REPORT INFORMATION
  Report Type: Spontaneous
  Country: US (occurrence: US)
  Receive Date: 20220317
  Receipt Date: 20221128
  Transmission Date: 20230113
  Serious: No
  Sender: FDA-Public Use
  Company Number: US-PFIZER INC-202200366118

PATIENT
  Age: 62 Year
  Sex: Female

DRUGS (10)
  1. XELJANZ XR [Suspect]
     Active Substance: TOFACITINIB CITRATE
     Indication: Rheumatoid arthritis
     Dosage: 11 MG, 1X/DAY
     Route: 048
     Dates: start: 20191102
  2. XELJANZ XR [Suspect]
     Active Substance: TOFACITINIB CITRATE
     Dosage: 11 MG, 1X/DAY
     Route: 048
     Dates: start: 20191125
  3. TRAZODONE HCL [Concomitant]
     Active Substance: TRAZODONE HYDROCHLORIDE
     Dosage: UNK
  4. PRAVASTATIN SODIUM [Concomitant]
     Active Substance: PRAVASTATIN SODIUM
     Dosage: UNK
  5. TRAMADOL HCL [Concomitant]
     Active Substance: TRAMADOL HYDROCHLORIDE
     Dosage: UNK
  6. BIOTIN [Concomitant]
     Active Substance: BIOTIN
     Dosage: UNK
  7. MAGNESIUM [Concomitant]
     Active Substance: MAGNESIUM
     Dosage: UNK
  8. ADVIL [Concomitant]
     Active Substance: IBUPROFEN
     Dosage: UNK
  9. ESTROGENS, CONJUGATED [Concomitant]
     Active Substance: ESTROGENS, CONJUGATED
     Dosage: UNK
  10. TESTOSTERONE [Concomitant]
     Active Substance: TESTOSTERONE
     Dosage: UNK

REACTIONS (8)
  - Nasopharyngitis [Unknown]
  - Pain [Unknown]
  - Condition aggravated [Not Recovered/Not Resolved]
  - Latent tuberculosis [Unknown]
  - Eye infection [Unknown]
  - Infection [Unknown]
  - Fungal infection [Unknown]
  - Fatigue [Unknown]
